FAERS Safety Report 8368095-0 (Version None)
Quarter: 2012Q2

REPORT INFORMATION
  Report Type: 
  Country: None (occurrence: None)
  Receive Date: 20120517
  Receipt Date: 20120514
  Transmission Date: 20120825
  Serious: Yes (Disabling, Other)
  Sender: FDA-Public Use
  Company Number: US-PFIZER INC-2012067696

PATIENT
  Sex: Male
  Weight: 136.5 kg

DRUGS (13)
  1. LYRICA [Suspect]
     Indication: NERVE INJURY
  2. LYRICA [Suspect]
     Indication: PAIN
  3. LYRICA [Suspect]
     Indication: NEUROPATHY PERIPHERAL
     Dosage: 150 MG, 2X/DAY
     Route: 048
  4. NEURONTIN [Suspect]
     Indication: NEUROPATHY PERIPHERAL
  5. CELEXA [Concomitant]
     Indication: DEPRESSION
     Dosage: 40MG DAILY
  6. NEURONTIN [Suspect]
     Indication: NERVE INJURY
  7. TRAZODONE [Concomitant]
     Indication: SLEEP DISORDER
  8. TRAZODONE [Concomitant]
     Indication: ANXIETY
  9. TRAZODONE [Concomitant]
     Indication: INSOMNIA
     Dosage: 300MG DAILY
  10. ALLOPURINOL [Concomitant]
     Indication: GOUT
     Dosage: 300 MG DAILY
  11. CELEXA [Concomitant]
  12. CELEXA [Concomitant]
     Indication: SLEEP DISORDER
  13. NEURONTIN [Suspect]
     Indication: PAIN
     Dosage: 1200 MG, 2X/DAY

REACTIONS (10)
  - PAIN [None]
  - BURNING SENSATION [None]
  - SPINAL OSTEOARTHRITIS [None]
  - HYPOAESTHESIA [None]
  - NEUROPATHY PERIPHERAL [None]
  - MEMORY IMPAIRMENT [None]
  - INTERVERTEBRAL DISC DEGENERATION [None]
  - DISCOMFORT [None]
  - OSTEOARTHRITIS [None]
  - PARAESTHESIA [None]
